FAERS Safety Report 7087956-6 (Version None)
Quarter: 2010Q4

REPORT INFORMATION
  Report Type: 
  Country: None (occurrence: None)
  Receive Date: 20101108
  Receipt Date: 20101026
  Transmission Date: 20110411
  Serious: Yes (Hospitalization)
  Sender: FDA-Public Use
  Company Number: US-US-EMD SERONO, INC.-7024703

PATIENT
  Sex: Male
  Weight: 54 kg

DRUGS (1)
  1. REBIF [Suspect]
     Indication: PRODUCT USED FOR UNKNOWN INDICATION
     Dates: start: 20041219, end: 20101001

REACTIONS (4)
  - ABDOMINAL WALL INFECTION [None]
  - GASTRIC DISORDER [None]
  - NAUSEA [None]
  - VOMITING [None]
